FAERS Safety Report 8886625 (Version 1)
Quarter: 2012Q4

REPORT INFORMATION
  Report Type: 
  Country: US (occurrence: US)
  Receive Date: 20121105
  Receipt Date: 20121105
  Transmission Date: 20130627
  Serious: No
  Sender: FDA-Public Use
  Company Number: US-BAYER-2012-114784

PATIENT
  Sex: Male

DRUGS (6)
  1. ALEVE CAPLET/TABLET,MIDOL EXTENDED RELIEF CAPLET [Suspect]
     Indication: RHEUMATOID ARTHRITIS
     Dosage: 2 DF, BID
  2. ALEVE CAPLET/TABLET,MIDOL EXTENDED RELIEF CAPLET [Suspect]
     Indication: RHEUMATOID ARTHRITIS
     Dosage: 4 DF, BID
  3. MANGOSTEEN JUICE [Concomitant]
     Indication: RHEUMATOID ARTHRITIS
     Dosage: 4 oz, TID
  4. MANGOSTEEN JUICE [Concomitant]
     Indication: RHEUMATOID ARTHRITIS
     Dosage: 3 oz, TID (before meals)
  5. MANGOSTEEN JUICE [Concomitant]
     Indication: RHEUMATOID ARTHRITIS
     Dosage: 2 oz, TID
  6. WATER [Concomitant]
     Indication: UNEVALUABLE EVENT
     Route: 048

REACTIONS (5)
  - General physical health deterioration [None]
  - Hypersomnia [None]
  - Pyrexia [None]
  - Overdose [None]
  - Overdose [None]
